FAERS Safety Report 6982445-9 (Version None)
Quarter: 2010Q3

REPORT INFORMATION
  Report Type: 
  Country: None (occurrence: None)
  Receive Date: 20100914
  Receipt Date: 20100201
  Transmission Date: 20110219
  Serious: No
  Sender: FDA-Public Use
  Company Number: US-PFIZER INC-2010014479

PATIENT
  Sex: Male

DRUGS (3)
  1. LYRICA [Suspect]
     Indication: NEUROPATHY PERIPHERAL
     Dosage: UNK
     Dates: start: 20091123
  2. LYRICA [Suspect]
     Indication: MUSCULAR DYSTROPHY
  3. FENTANYL [Concomitant]
     Dosage: UNK
     Route: 062

REACTIONS (1)
  - MYALGIA [None]
